FAERS Safety Report 19487634 (Version 1)
Quarter: 2021Q3

REPORT INFORMATION
  Report Type: Spontaneous
  Country: US (occurrence: US)
  Receive Date: 20210702
  Receipt Date: 20210702
  Transmission Date: 20211014
  Serious: Yes (Other)
  Sender: FDA-Public Use
  Company Number: US-BAXTER-2021BAX018615

PATIENT
  Age: 38 Year
  Sex: Female

DRUGS (6)
  1. DOXIL [Suspect]
     Active Substance: DOXORUBICIN HYDROCHLORIDE
     Indication: T-CELL TYPE ACUTE LEUKAEMIA
     Dosage: HYPER?CVAD
     Route: 065
     Dates: start: 20141011
  2. VINCRISTINE [Suspect]
     Active Substance: VINCRISTINE
     Indication: T-CELL TYPE ACUTE LEUKAEMIA
     Dosage: HYPER?CVAD
     Route: 065
     Dates: start: 20141011
  3. DEXAMETHASONE. [Suspect]
     Active Substance: DEXAMETHASONE
     Indication: T-CELL TYPE ACUTE LEUKAEMIA
     Dosage: HYPER?CVAD
     Route: 065
     Dates: start: 20141011
  4. ROMIDEPSIN. [Suspect]
     Active Substance: ROMIDEPSIN
     Indication: T-CELL TYPE ACUTE LEUKAEMIA
     Dosage: ON DAYS 11 AND 18 OF HYPER?CVAD CYCLE 1A
     Route: 042
     Dates: start: 2014
  5. CYCLOPHOSPHAMIDE FOR INJECTION, USP [Suspect]
     Active Substance: CYCLOPHOSPHAMIDE
     Indication: T-CELL TYPE ACUTE LEUKAEMIA
     Dosage: HYPER?CVAD
     Route: 065
     Dates: start: 20141011
  6. METHOTREXATE. [Concomitant]
     Active Substance: METHOTREXATE
     Indication: PROPHYLAXIS
     Route: 037

REACTIONS (2)
  - Tumour lysis syndrome [Unknown]
  - Neutropenia [Unknown]

NARRATIVE: CASE EVENT DATE: 2014
